FAERS Safety Report 9196470 (Version 2)
Quarter: 2013Q2

REPORT INFORMATION
  Report Type: Spontaneous
  Country: SE (occurrence: SE)
  Receive Date: 20130328
  Receipt Date: 20130618
  Transmission Date: 20140414
  Serious: Yes (Life-Threatening, Hospitalization)
  Sender: FDA-Public Use
  Company Number: SE-PFIZER INC-2013098678

PATIENT
  Age: 36 Year
  Sex: Female

DRUGS (3)
  1. CYTOTEC [Suspect]
     Indication: ABORTION SPONTANEOUS
     Dosage: 0.2 MG, FOUR TABLETS IN TOTAL
     Route: 067
     Dates: start: 20130221, end: 20130221
  2. ALVEDON [Concomitant]
     Indication: PAIN PROPHYLAXIS
     Dosage: 2 G, UNK
  3. DICLOFENAC [Concomitant]
     Indication: PAIN PROPHYLAXIS
     Dosage: 100 MG, UNK

REACTIONS (11)
  - Off label use [Unknown]
  - Apnoea [Recovered/Resolved]
  - Cold sweat [Recovered/Resolved]
  - Confusional state [Recovered/Resolved]
  - Diarrhoea [Recovered/Resolved]
  - Syncope [Recovered/Resolved]
  - Fatigue [Recovered/Resolved]
  - Abdominal pain [Recovered/Resolved]
  - Nausea [Recovered/Resolved]
  - Localised oedema [Recovered/Resolved]
  - Pruritus [Recovered/Resolved]
